FAERS Safety Report 8007415-3 (Version None)
Quarter: 2011Q4

REPORT INFORMATION
  Report Type: 
  Country: None (occurrence: None)
  Receive Date: 20111227
  Receipt Date: 20111213
  Transmission Date: 20120403
  Serious: Yes (Other)
  Sender: FDA-Public Use
  Company Number: US-ELI_LILLY_AND_COMPANY-US201111001870

PATIENT
  Age: 54 Year
  Sex: Female

DRUGS (2)
  1. FORTEO [Suspect]
     Indication: OSTEOPENIA
     Dosage: 20 UG, UNKNOWN
     Route: 065
     Dates: start: 20110901
  2. FORTEO [Suspect]
     Dosage: 20 UG, UNKNOWN
     Route: 065
     Dates: end: 20111001

REACTIONS (3)
  - LIP SWELLING [None]
  - HEADACHE [None]
  - PRURITUS GENERALISED [None]
